FAERS Safety Report 9080523 (Version 1)
Quarter: 2013Q1

REPORT INFORMATION
  Report Type: Report from Study
  Country: US (occurrence: US)
  Receive Date: 20130130
  Receipt Date: 20130130
  Transmission Date: 20140127
  Serious: No
  Sender: FDA-Public Use
  Company Number: US-ABBOTT-12P-163-0963649-00

PATIENT
  Sex: Male
  Weight: 89.44 kg

DRUGS (4)
  1. HUMIRA 40 MG/0.8 ML PEN [Suspect]
     Indication: CROHN^S DISEASE
     Route: 058
     Dates: start: 201105
  2. IMURAN [Concomitant]
     Indication: CROHN^S DISEASE
  3. OXYCODONE [Concomitant]
     Indication: PAIN
  4. ALPRAZOLAM [Concomitant]
     Indication: ANXIETY

REACTIONS (2)
  - Diarrhoea [Recovered/Resolved]
  - Abdominal pain [Recovered/Resolved]
